FAERS Safety Report 6257555-4 (Version None)
Quarter: 2009Q3

REPORT INFORMATION
  Report Type: 
  Country: None (occurrence: None)
  Receive Date: 20090706
  Receipt Date: 20090626
  Transmission Date: 20100115
  Serious: Yes (Hospitalization, Other)
  Sender: FDA-Public Use
  Company Number: PHHY2009MX26170

PATIENT
  Age: 72 Year
  Sex: Female

DRUGS (2)
  1. ACLASTA [Suspect]
     Indication: OSTEOPOROSIS
     Dosage: 5 MG/100 ML IV INFUSION
     Route: 042
     Dates: start: 20070501
  2. ACLASTA [Suspect]
     Dosage: 5 MG/100 ML IV INFUSION
     Route: 042
     Dates: start: 20080501

REACTIONS (2)
  - LUNG NEOPLASM MALIGNANT [None]
  - SPINAL OPERATION [None]
